FAERS Safety Report 4754072-5 (Version None)
Quarter: 2005Q3

REPORT INFORMATION
  Report Type: 
  Country: None (occurrence: None)
  Receive Date: 20050826
  Receipt Date: 20050817
  Transmission Date: 20060218
  Serious: No
  Sender: FDA-Public Use
  Company Number: 163-20785-04120053

PATIENT
  Age: 76 Year
  Sex: Female

DRUGS (7)
  1. THALOMID [Suspect]
     Indication: MULTIPLE MYELOMA
     Dosage: 200 MG, DAILY, ORAL
     Route: 048
     Dates: start: 20040907
  2. LANOXIN [Concomitant]
  3. TENORMIN [Concomitant]
  4. CELEBREX [Concomitant]
  5. LIPITOR [Concomitant]
  6. ATIVAN [Concomitant]
  7. SYNTHROID [Concomitant]

REACTIONS (3)
  - BRADYCARDIA [None]
  - CORONARY ARTERY DISEASE [None]
  - HYPOAESTHESIA [None]
